FAERS Safety Report 6636905-0 (Version None)
Quarter: 2010Q1

REPORT INFORMATION
  Report Type: 
  Country: None (occurrence: None)
  Receive Date: 20100316
  Receipt Date: 20100309
  Transmission Date: 20100710
  Serious: Yes (Hospitalization)
  Sender: FDA-Public Use
  Company Number: PHHY2010FR14646

PATIENT
  Sex: Female

DRUGS (8)
  1. FEMARA [Suspect]
     Dosage: 7.5 MG DAILY
     Route: 048
     Dates: start: 20100214, end: 20100215
  2. AVASTIN [Suspect]
     Dosage: 25 MG/ML, UNK
     Route: 042
     Dates: start: 20090915, end: 20100120
  3. TAXOL [Suspect]
     Dosage: UNK
     Route: 042
     Dates: start: 20090901, end: 20091214
  4. TRIATEC [Concomitant]
  5. LASILIX [Concomitant]
  6. MOPRAL [Concomitant]
  7. NUROFEN [Concomitant]
  8. PARACETAMOL [Concomitant]

REACTIONS (7)
  - ARRHYTHMIA [None]
  - ATRIAL FIBRILLATION [None]
  - CARDIOMYOPATHY [None]
  - DYSPNOEA [None]
  - ELECTROCARDIOGRAM QT PROLONGED [None]
  - QRS AXIS ABNORMAL [None]
  - TACHYCARDIA [None]
